FAERS Safety Report 8328132-6 (Version None)
Quarter: 2012Q2

REPORT INFORMATION
  Report Type: 
  Country: None (occurrence: None)
  Receive Date: 20120502
  Receipt Date: 20120430
  Transmission Date: 20120825
  Serious: Yes (Other)
  Sender: FDA-Public Use
  Company Number: PHHY2012DE010322

PATIENT
  Age: 74 Year
  Sex: Female

DRUGS (1)
  1. ZOMETA [Suspect]
     Dosage: 4 MG, EVERY 4 WEEKS
     Route: 042
     Dates: start: 20030801

REACTIONS (4)
  - FRACTURE [None]
  - FEMUR FRACTURE [None]
  - FALL [None]
  - IMPAIRED HEALING [None]
